FAERS Safety Report 9385803 (Version 1)
Quarter: 2013Q3

REPORT INFORMATION
  Report Type: Spontaneous
  Country: US (occurrence: US)
  Receive Date: 20130705
  Receipt Date: 20130705
  Transmission Date: 20140515
  Serious: No
  Sender: FDA-Public Use
  Company Number: US-TEVA-416398USA

PATIENT
  Age: 25 Year
  Sex: Female
  Weight: 77.18 kg

DRUGS (8)
  1. PLAN B ONE-STEP [Suspect]
     Indication: POST COITAL CONTRACEPTION
     Dosage: 1.5 MILLIGRAM DAILY;
     Route: 048
     Dates: start: 20130620, end: 20130620
  2. NUVARING [Suspect]
     Indication: CONTRACEPTION
     Dates: start: 2012
  3. TOPAMAX [Concomitant]
     Indication: ANXIETY
     Dates: start: 2012
  4. TOPAMAX [Concomitant]
     Indication: MOOD SWINGS
  5. CELEXA [Concomitant]
     Indication: ANXIETY
     Dates: start: 2012
  6. CELEXA [Concomitant]
     Indication: MOOD SWINGS
  7. LAMICTAL [Concomitant]
     Indication: ANXIETY
     Dates: start: 2012
  8. LAMICTAL [Concomitant]
     Indication: MOOD SWINGS

REACTIONS (1)
  - Nausea [Not Recovered/Not Resolved]
